FAERS Safety Report 6787964-6 (Version None)
Quarter: 2010Q2

REPORT INFORMATION
  Report Type: 
  Country: None (occurrence: None)
  Receive Date: 20100623
  Receipt Date: 20071217
  Transmission Date: 20101027
  Serious: No
  Sender: FDA-Public Use
  Company Number: US-PFIZER INC-2007106435

PATIENT
  Sex: Male
  Weight: 90.909 kg

DRUGS (3)
  1. SUTENT [Suspect]
     Indication: RENAL CELL CARCINOMA
     Dates: start: 20071117, end: 20071214
  2. SUTENT [Suspect]
     Indication: METASTASES TO LUNG
  3. LEVAQUIN [Concomitant]

REACTIONS (1)
  - CHEST DISCOMFORT [None]
